FAERS Safety Report 7667638-X (Version None)
Quarter: 2011Q3

REPORT INFORMATION
  Report Type: 
  Country: None (occurrence: None)
  Receive Date: 20110806
  Receipt Date: 20110407
  Transmission Date: 20111222
  Serious: No
  Sender: FDA-Public Use
  Company Number: US-ABBOTT-11P-163-0717922-00

PATIENT
  Sex: Female
  Weight: 67.646 kg

DRUGS (8)
  1. MULTI-VITAMIN [Concomitant]
     Indication: VITAMIN SUPPLEMENTATION
  2. LEXAPRO [Concomitant]
     Indication: ANXIETY
  3. LISINOPRIL [Concomitant]
     Indication: HYPERTENSION
  4. FISH OIL [Concomitant]
     Indication: MEDICAL DIET
  5. SPIRIVA [Concomitant]
     Indication: CHRONIC OBSTRUCTIVE PULMONARY DISEASE
  6. CRESTOR [Concomitant]
     Indication: BLOOD CHOLESTEROL INCREASED
  7. NIASPAN [Suspect]
     Indication: BLOOD CHOLESTEROL INCREASED
     Dates: start: 20100101, end: 20100101
  8. ZINC [Concomitant]
     Indication: MINERAL SUPPLEMENTATION

REACTIONS (4)
  - BREAST MASS [None]
  - PRURITUS [None]
  - VAGINAL HAEMORRHAGE [None]
  - FLUSHING [None]
